FAERS Safety Report 4672841-7 (Version None)
Quarter: 2005Q2

REPORT INFORMATION
  Report Type: 
  Country: None (occurrence: None)
  Receive Date: 20050523
  Receipt Date: 20050511
  Transmission Date: 20051028
  Serious: Yes (Hospitalization, Other)
  Sender: FDA-Public Use
  Company Number: 2005-00571

PATIENT
  Age: 27 Year
  Sex: Female
  Weight: 127 kg

DRUGS (7)
  1. PREDNISONE [Suspect]
     Indication: ANAEMIA HAEMOLYTIC AUTOIMMUNE
     Dosage: SEE IMAGE
     Route: 048
     Dates: start: 20020901, end: 20030301
  2. PREDNISONE [Suspect]
     Indication: ANAEMIA HAEMOLYTIC AUTOIMMUNE
     Dosage: SEE IMAGE
     Route: 048
     Dates: start: 20030301, end: 20030501
  3. PREDNISONE [Suspect]
     Indication: ANAEMIA HAEMOLYTIC AUTOIMMUNE
     Dosage: SEE IMAGE
     Route: 048
     Dates: start: 20030501, end: 20030601
  4. PREDNISONE [Suspect]
     Indication: ANAEMIA HAEMOLYTIC AUTOIMMUNE
     Dosage: SEE IMAGE
     Route: 048
     Dates: start: 20030601, end: 20030801
  5. PREDNISONE [Suspect]
     Indication: ANAEMIA HAEMOLYTIC AUTOIMMUNE
     Dosage: SEE IMAGE
     Route: 048
     Dates: start: 20030801, end: 20050324
  6. PREDNISONE [Suspect]
     Indication: ANAEMIA HAEMOLYTIC AUTOIMMUNE
     Dosage: SEE IMAGE
     Route: 048
     Dates: start: 20050325
  7. INSULIN [Concomitant]

REACTIONS (13)
  - ABORTION SPONTANEOUS [None]
  - ANGINA PECTORIS [None]
  - ARTHRALGIA [None]
  - ASTHENIA [None]
  - DECREASED APPETITE [None]
  - DENTAL CARIES [None]
  - DRUG EXPOSURE DURING PREGNANCY [None]
  - FLUID RETENTION [None]
  - INSOMNIA [None]
  - MOOD SWINGS [None]
  - TOOTH LOSS [None]
  - TOOTHACHE [None]
  - WEIGHT INCREASED [None]
